FAERS Safety Report 8173591-5 (Version None)
Quarter: 2012Q1

REPORT INFORMATION
  Report Type: 
  Country: None (occurrence: None)
  Receive Date: 20120229
  Receipt Date: 20120223
  Transmission Date: 20120608
  Serious: Yes (Hospitalization)
  Sender: FDA-Public Use
  Company Number: FR-PFIZER INC-2012052630

PATIENT
  Age: 83 Year
  Sex: Male

DRUGS (4)
  1. PANTOPRAZOLE [Suspect]
     Dosage: 20 MG, UNK
     Route: 048
     Dates: start: 20120108, end: 20120123
  2. ESCITALOPRAM OXALATE [Suspect]
     Indication: DEPRESSION
     Dosage: 10 MG, UNK
     Route: 048
  3. ASPIRIN [Suspect]
     Indication: HYPERTENSION
     Dosage: 75 MG, UNK
     Route: 048
  4. VALSARTAN [Suspect]
     Indication: HYPERTENSION
     Dosage: 80 MG, UNK
     Route: 048

REACTIONS (1)
  - NEUTROPENIA [None]
